FAERS Safety Report 18128814 (Version 1)
Quarter: 2020Q3

REPORT INFORMATION
  Report Type: Spontaneous
  Country: US (occurrence: US)
  Receive Date: 20200809
  Receipt Date: 20200809
  Transmission Date: 20201103
  Serious: No
  Sender: FDA-Public Use
  Company Number: None

PATIENT
  Age: 19 Month
  Sex: Female

DRUGS (2)
  1. CETERIZINE [Concomitant]
     Active Substance: CETIRIZINE HYDROCHLORIDE
  2. CETIRIZINE [Suspect]
     Active Substance: CETIRIZINE HYDROCHLORIDE

REACTIONS (3)
  - Restlessness [None]
  - Muscle twitching [None]
  - Feeling abnormal [None]

NARRATIVE: CASE EVENT DATE: 20200809
